FAERS Safety Report 11830689 (Version 3)
Quarter: 2017Q3

REPORT INFORMATION
  Report Type: Spontaneous
  Country: JP (occurrence: JP)
  Receive Date: 20151214
  Receipt Date: 20170928
  Transmission Date: 20171127
  Serious: Yes (Hospitalization)
  Sender: FDA-Public Use
  Company Number: JP-CIPLA LTD.-2015JP09115

PATIENT

DRUGS (2)
  1. BISOPROLOL [Concomitant]
     Active Substance: BISOPROLOL
     Indication: HYPERTENSION
     Dosage: 5 MG, QD
     Route: 065
  2. DONEPEZIL. [Suspect]
     Active Substance: DONEPEZIL
     Indication: DEMENTIA ALZHEIMER^S TYPE
     Dosage: 5 MG, QD
     Route: 048

REACTIONS (7)
  - Hypokalaemia [Unknown]
  - Electrocardiogram QT prolonged [Recovering/Resolving]
  - Colitis [Unknown]
  - Torsade de pointes [Recovered/Resolved]
  - Syncope [Unknown]
  - Seizure [Unknown]
  - Ventricular extrasystoles [Recovering/Resolving]
